FAERS Safety Report 4452192-6 (Version None)
Quarter: 2004Q3

REPORT INFORMATION
  Report Type: 
  Country: None (occurrence: None)
  Receive Date: 20040916
  Receipt Date: 20040916
  Transmission Date: 20050211
  Serious: Yes (Hospitalization)
  Sender: FDA-Public Use
  Company Number: None

PATIENT
  Sex: Female
  Weight: 66.4 kg

DRUGS (3)
  1. CELECOXIB [Suspect]
     Dosage: 200 MG  Q DAY   ORAL
     Route: 048
  2. ASPIRIN [Concomitant]
  3. RISEDRONATE SODIUM [Concomitant]

REACTIONS (3)
  - DYSPNOEA [None]
  - FAECES DISCOLOURED [None]
  - GASTROINTESTINAL HAEMORRHAGE [None]
